FAERS Safety Report 9496794 (Version 11)
Quarter: 2014Q2

REPORT INFORMATION
  Report Type: Report from Study
  Country: US (occurrence: US)
  Receive Date: 20130904
  Receipt Date: 20140523
  Transmission Date: 20141212
  Serious: Yes (Hospitalization, Other)
  Sender: FDA-Public Use
  Company Number: US-ROCHE-1242025

PATIENT
  Age: 44 Year
  Sex: Female

DRUGS (17)
  1. PEGASYS [Suspect]
     Indication: CHRONIC HEPATITIS C
     Route: 058
     Dates: start: 20130514
  2. PEGASYS [Suspect]
     Route: 058
     Dates: start: 20130926
  3. PEGASYS [Suspect]
     Route: 058
     Dates: start: 20130514
  4. RIBAVIRIN [Suspect]
     Indication: CHRONIC HEPATITIS C
     Route: 048
     Dates: start: 20130514
  5. RIBAVIRIN [Suspect]
     Route: 065
     Dates: start: 20130514
  6. INCIVEK [Suspect]
     Indication: CHRONIC HEPATITIS C
     Route: 065
     Dates: start: 20130611, end: 20130823
  7. PROMACTA [Concomitant]
     Indication: INCREASED TENDENCY TO BRUISE
  8. PROMACTA [Concomitant]
     Indication: PLATELET COUNT DECREASED
  9. ATENOLOL [Concomitant]
     Dosage: DAILY
     Route: 065
  10. SPIRONOLACTONE [Concomitant]
     Route: 065
  11. FUROSEMIDE [Concomitant]
     Dosage: 1 PER DAY
     Route: 065
  12. TRAZODONE [Concomitant]
  13. CITALOPRAM [Concomitant]
  14. LASIX [Concomitant]
  15. ZOLPIDEM TARTRATE [Concomitant]
  16. AMBIEN [Concomitant]
     Route: 065
  17. ZYRTEC [Concomitant]
     Indication: HYPERSENSITIVITY

REACTIONS (40)
  - Red blood cell count decreased [Not Recovered/Not Resolved]
  - White blood cell count decreased [Not Recovered/Not Resolved]
  - Platelet count decreased [Unknown]
  - Anaemia [Unknown]
  - Pancreatitis [Unknown]
  - Blood potassium increased [Unknown]
  - Headache [Unknown]
  - Insomnia [Unknown]
  - Asthenia [Not Recovered/Not Resolved]
  - Dyspnoea [Not Recovered/Not Resolved]
  - Fatigue [Unknown]
  - Drug administration error [Unknown]
  - Fatigue [Not Recovered/Not Resolved]
  - Dehydration [Unknown]
  - Blood pressure decreased [Unknown]
  - Fluid retention [Unknown]
  - Rhinorrhoea [Unknown]
  - Bloody discharge [Unknown]
  - Pyrexia [Unknown]
  - Cardiac flutter [Unknown]
  - Blood potassium decreased [Unknown]
  - Asthma [Unknown]
  - Pruritus [Unknown]
  - Memory impairment [Unknown]
  - Gait disturbance [Unknown]
  - Dizziness [Unknown]
  - Diarrhoea [Unknown]
  - Confusional state [Unknown]
  - Tremor [Unknown]
  - Cough [Unknown]
  - Wheezing [Unknown]
  - Insomnia [Unknown]
  - Mood swings [Unknown]
  - Decreased appetite [Unknown]
  - Headache [Not Recovered/Not Resolved]
  - Constipation [Unknown]
  - Alopecia [Not Recovered/Not Resolved]
  - Insomnia [Unknown]
  - Chills [Unknown]
  - Alcoholism [Unknown]
